FAERS Safety Report 4591217-4 (Version None)
Quarter: 2005Q1

REPORT INFORMATION
  Report Type: 
  Country: None (occurrence: None)
  Receive Date: 20050222
  Receipt Date: 20050211
  Transmission Date: 20050727
  Serious: Yes (Hospitalization)
  Sender: FDA-Public Use
  Company Number: 2005-02-0589

PATIENT
  Sex: Male

DRUGS (1)
  1. PEG-INTRON [Suspect]

REACTIONS (1)
  - INFARCTION [None]
